FAERS Safety Report 4674946-3 (Version None)
Quarter: 2005Q2

REPORT INFORMATION
  Report Type: 
  Country: None (occurrence: None)
  Receive Date: 20050526
  Receipt Date: 20050513
  Transmission Date: 20051028
  Serious: Yes (Other)
  Sender: FDA-Public Use
  Company Number: 2005-01008

PATIENT
  Age: 77 Year
  Sex: Male
  Weight: 90.7 kg

DRUGS (3)
  1. INTEGRILIN [Suspect]
     Indication: CORONARY ANGIOPLASTY
     Dates: start: 20050505, end: 20050506
  2. SIMVASTATIN [Concomitant]
  3. ALLOPURINOL [Concomitant]

REACTIONS (8)
  - BRADYCARDIA [None]
  - CORONARY ARTERY OCCLUSION [None]
  - HAEMATOMA [None]
  - HAEMOGLOBIN DECREASED [None]
  - HYPOTENSION [None]
  - LIVER FUNCTION TEST ABNORMAL [None]
  - PLEURISY [None]
  - PYREXIA [None]
